FAERS Safety Report 11626306 (Version 1)
Quarter: 2015Q4

REPORT INFORMATION
  Report Type: Report from Study
  Country: JP (occurrence: JP)
  Receive Date: 20151013
  Receipt Date: 20151013
  Transmission Date: 20160304
  Serious: Yes (Death, Life-Threatening, Hospitalization, Other)
  Sender: FDA-Public Use
  Company Number: JP-GLAXOSMITHKLINE-B0638719A

PATIENT
  Age: 53 Year
  Sex: Female
  Weight: 39 kg

DRUGS (6)
  1. MUCODYNE [Concomitant]
     Active Substance: CARBOCYSTEINE
     Indication: COUGH
     Route: 048
     Dates: start: 20091226, end: 20100408
  2. TYKERB [Suspect]
     Active Substance: LAPATINIB DITOSYLATE
     Indication: BREAST CANCER
     Route: 048
     Dates: start: 20100216, end: 20100405
  3. FUROSEMIDE. [Concomitant]
     Active Substance: FUROSEMIDE
     Indication: ASCITES
     Route: 048
     Dates: start: 20100104, end: 20100408
  4. XELODA [Concomitant]
     Active Substance: CAPECITABINE
     Route: 048
     Dates: start: 20100216, end: 20100301
  5. XELODA [Concomitant]
     Active Substance: CAPECITABINE
     Route: 048
     Dates: start: 20100316, end: 20100329
  6. ALDACTONE A [Concomitant]
     Active Substance: SPIRONOLACTONE
     Indication: ASCITES
     Route: 048
     Dates: start: 20100102, end: 20100408

REACTIONS (9)
  - Altered state of consciousness [Unknown]
  - Electrocardiogram abnormal [Unknown]
  - Diarrhoea [Recovering/Resolving]
  - Cardio-respiratory arrest [Unknown]
  - Ascites [Unknown]
  - Hepatic function abnormal [Unknown]
  - Myocardial ischaemia [Unknown]
  - Palmar-plantar erythrodysaesthesia syndrome [Unknown]
  - Malignant ascites [Unknown]

NARRATIVE: CASE EVENT DATE: 20100216
